FAERS Safety Report 12998623 (Version 9)
Quarter: 2017Q2

REPORT INFORMATION
  Report Type: Spontaneous
  Country: US (occurrence: US)
  Receive Date: 20161205
  Receipt Date: 20170605
  Transmission Date: 20170830
  Serious: Yes (Other)
  Sender: FDA-Public Use
  Company Number: US-LUNDBECK-DKLU2023323

PATIENT
  Age: 51 Year
  Sex: Male

DRUGS (8)
  1. NORTHERA [Suspect]
     Active Substance: DROXIDOPA
     Dosage: TITRATION COMPLETE?MAINTANENCE DOSE?SCHEDULE B
     Route: 048
  2. NORTHERA [Suspect]
     Active Substance: DROXIDOPA
     Route: 048
  3. NORTHERA [Suspect]
     Active Substance: DROXIDOPA
     Indication: PRODUCT USED FOR UNKNOWN INDICATION
     Dosage: SCHEDULE B AND TITRATING
     Route: 048
     Dates: start: 20161123
  4. NORTHERA [Suspect]
     Active Substance: DROXIDOPA
     Dosage: OVERDOSE: 2400MG
     Route: 065
  5. NORTHERA [Suspect]
     Active Substance: DROXIDOPA
     Dosage: TITRATION COMPLETE
     Route: 048
  6. NORTHERA [Suspect]
     Active Substance: DROXIDOPA
     Dosage: TITRATION COMPLETE
     Route: 048
  7. NORTHERA [Suspect]
     Active Substance: DROXIDOPA
     Route: 048
  8. NORTHERA [Suspect]
     Active Substance: DROXIDOPA
     Route: 048
     Dates: start: 20161228

REACTIONS (24)
  - Constipation [Unknown]
  - Blood pressure increased [Unknown]
  - Abdominal pain upper [Unknown]
  - Abnormal dreams [Unknown]
  - Orthostatic hypotension [Unknown]
  - Blood pressure fluctuation [Unknown]
  - Rapid eye movement sleep behaviour disorder [Unknown]
  - Limb discomfort [Unknown]
  - Hypotension [Unknown]
  - Drug hypersensitivity [Not Recovered/Not Resolved]
  - Loss of consciousness [Unknown]
  - Balance disorder [Unknown]
  - Condition aggravated [Unknown]
  - Erectile dysfunction [Unknown]
  - Dizziness [Unknown]
  - Syncope [Unknown]
  - Overdose [Unknown]
  - Myocardial infarction [Unknown]
  - Pain in extremity [Unknown]
  - Palpitations [Unknown]
  - Fatigue [Unknown]
  - Supine hypertension [Unknown]
  - Diarrhoea [Unknown]
  - Drug dose omission [Unknown]

NARRATIVE: CASE EVENT DATE: 20161127
